FAERS Safety Report 4889850-5 (Version None)
Quarter: 2006Q1

REPORT INFORMATION
  Report Type: 
  Country: None (occurrence: None)
  Receive Date: 20060124
  Receipt Date: 20051005
  Transmission Date: 20060701
  Serious: Yes (Hospitalization, Disabling)
  Sender: FDA-Public Use
  Company Number: US-MERCK-0510USA05593

PATIENT
  Age: 25 Year
  Sex: Female
  Weight: 112 kg

DRUGS (4)
  1. VIOXX [Suspect]
     Indication: FIBROMYALGIA
     Route: 048
     Dates: start: 19990101, end: 20030507
  2. VIOXX [Suspect]
     Route: 048
     Dates: start: 20030101
  3. VIOXX [Suspect]
     Route: 048
     Dates: start: 20040110, end: 20040930
  4. VIOXX [Suspect]
     Route: 048
     Dates: start: 19990101, end: 20040930

REACTIONS (26)
  - ABDOMINAL PAIN [None]
  - ABDOMINAL PAIN UPPER [None]
  - ANXIETY [None]
  - DEHYDRATION [None]
  - DEPRESSION [None]
  - FIBROMYALGIA [None]
  - GALLBLADDER DISORDER [None]
  - GASTRIC DISORDER [None]
  - GASTRITIS [None]
  - GASTROENTERITIS [None]
  - HERNIA [None]
  - HYPERLIPIDAEMIA [None]
  - MENORRHAGIA [None]
  - MIGRAINE [None]
  - NAUSEA [None]
  - OVARIAN CYST [None]
  - PANCREATIC CYST [None]
  - PEPTIC ULCER [None]
  - PERICARDIAL EFFUSION [None]
  - PYELONEPHRITIS [None]
  - TONSILLECTOMY [None]
  - URINARY TRACT INFECTION [None]
  - UTERINE DISORDER [None]
  - VOMITING [None]
  - WEIGHT DECREASED [None]
  - WOLFF-PARKINSON-WHITE SYNDROME [None]
